FAERS Safety Report 16833188 (Version 1)
Quarter: 2019Q4

REPORT INFORMATION
  Report Type: Spontaneous
  Country: US (occurrence: US)
  Receive Date: 20190920
  Receipt Date: 20190920
  Transmission Date: 20200122
  Serious: No
  Sender: FDA-Public Use
  Company Number: None

PATIENT
  Sex: Male

DRUGS (1)
  1. METOPROLOL TARTRATEN 50 MG [Suspect]
     Active Substance: METOPROLOL TARTRATE

REACTIONS (3)
  - Dizziness [None]
  - Nausea [None]
  - Drug intolerance [None]
